FAERS Safety Report 23842529 (Version 1)
Quarter: 2024Q2

REPORT INFORMATION
  Report Type: Spontaneous
  Country: EG (occurrence: EG)
  Receive Date: 20240510
  Receipt Date: 20240510
  Transmission Date: 20240715
  Serious: Yes (Hospitalization, Other)
  Sender: FDA-Public Use
  Company Number: EG-HIKMA PHARMACEUTICALS-EG-H14001-24-03955

PATIENT
  Age: 49 Year
  Sex: Female

DRUGS (6)
  1. CARBOPLATIN [Suspect]
     Active Substance: CARBOPLATIN
     Dosage: 450 MILLIGRAM
     Route: 065
     Dates: start: 20240304
  2. CARBOPLATIN [Suspect]
     Active Substance: CARBOPLATIN
     Indication: Breast cancer
     Dosage: 600 MILLIGRAM
     Route: 065
     Dates: start: 20240212
  3. DOCETAXEL [Suspect]
     Active Substance: DOCETAXEL\DOCETAXEL ANHYDROUS
     Dosage: 100 MILLIGRAM
     Route: 065
     Dates: start: 20240304
  4. DOCETAXEL [Suspect]
     Active Substance: DOCETAXEL\DOCETAXEL ANHYDROUS
     Indication: Breast cancer
     Dosage: 110 MILLIGRAM
     Route: 065
     Dates: start: 20240212
  5. PERTUZUMAB\TRASTUZUMAB [Suspect]
     Active Substance: PERTUZUMAB\TRASTUZUMAB
     Indication: Breast cancer
     Dosage: 1-2 ML IN HER LEFT THIGH
     Route: 065
     Dates: start: 20240325
  6. PERTUZUMAB\TRASTUZUMAB [Suspect]
     Active Substance: PERTUZUMAB\TRASTUZUMAB
     Dosage: AFTER 15 MINS, IN HER RIGHT THIGH
     Route: 065
     Dates: start: 20240325

REACTIONS (12)
  - Arthralgia [Unknown]
  - Neuropathy peripheral [Unknown]
  - Abscess limb [Unknown]
  - Nasal abscess [Unknown]
  - Abscess oral [Unknown]
  - Rectal abscess [Unknown]
  - Decreased appetite [Unknown]
  - Stomatitis [Unknown]
  - Bone pain [Unknown]
  - Dyspepsia [Unknown]
  - Abdominal discomfort [Unknown]
  - Diarrhoea [Unknown]

NARRATIVE: CASE EVENT DATE: 20240325
